FAERS Safety Report 6070156-6 (Version None)
Quarter: 2009Q1

REPORT INFORMATION
  Report Type: 
  Country: None (occurrence: None)
  Receive Date: 20090209
  Receipt Date: 20090130
  Transmission Date: 20090719
  Serious: Yes (Other)
  Sender: FDA-Public Use
  Company Number: DE-ABBOTT-08P-062-0494654-00

PATIENT
  Sex: Male

DRUGS (6)
  1. ERGENYL CHRONOSPHERE [Suspect]
     Indication: EPILEPSY
     Route: 048
  2. ERGENYL CHRONOSPHERE [Suspect]
     Route: 048
  3. RISPERIDONE [Concomitant]
     Indication: AGGRESSION
     Route: 048
     Dates: start: 20070101
  4. RISPERIDONE [Concomitant]
     Indication: MENTAL DISORDER DUE TO A GENERAL MEDICAL CONDITION
     Route: 048
     Dates: start: 20080701
  5. CITALOPRAM HYDROBROMIDE [Concomitant]
     Indication: DEPRESSION
     Route: 048
     Dates: start: 20070101, end: 20080701
  6. CITALOPRAM HYDROBROMIDE [Concomitant]
     Indication: MENTAL DISORDER DUE TO A GENERAL MEDICAL CONDITION

REACTIONS (11)
  - ACTIVITIES OF DAILY LIVING IMPAIRED [None]
  - AKINESIA [None]
  - CONVULSION [None]
  - DISTURBANCE IN ATTENTION [None]
  - ENCEPHALOPATHY [None]
  - FATIGUE [None]
  - HEMIPARESIS [None]
  - OVERDOSE [None]
  - PARESIS [None]
  - SALIVARY HYPERSECRETION [None]
  - SOMNOLENCE [None]
